FAERS Safety Report 22007807 (Version 3)
Quarter: 2024Q1

REPORT INFORMATION
  Report Type: Report from Study
  Country: MX (occurrence: MX)
  Receive Date: 20230218
  Receipt Date: 20240314
  Transmission Date: 20240410
  Serious: Yes (Life-Threatening, Hospitalization, Other)
  Sender: FDA-Public Use
  Company Number: MX-002147023-NVSC2022MX249648

PATIENT
  Age: 43 Year
  Sex: Female
  Weight: 65 kg

DRUGS (6)
  1. GILENYA [Suspect]
     Active Substance: FINGOLIMOD HYDROCHLORIDE
     Indication: Multiple sclerosis
     Dosage: 0.5 MG, QD
     Route: 048
     Dates: start: 20220816
  2. ACETAMINOPHEN [Suspect]
     Active Substance: ACETAMINOPHEN
     Indication: Product used for unknown indication
     Dosage: 1 G
     Route: 065
  3. VALPROATE MAGNESIUM [Concomitant]
     Active Substance: VALPROATE MAGNESIUM
     Indication: Product used for unknown indication
     Dosage: 200 MG (EVERY 12 HOURS)
     Route: 065
  4. SENOSIDOS AB [Concomitant]
     Indication: Product used for unknown indication
     Dosage: 8.6 MG
     Route: 048
  5. LOSARTAN [Concomitant]
     Active Substance: LOSARTAN
     Indication: Product used for unknown indication
     Dosage: 50 MG (AT NIGHT)
     Route: 065
  6. METOPROLOL [Concomitant]
     Active Substance: METOPROLOL
     Indication: Product used for unknown indication
     Dosage: 100 MG, IN THE MORNING
     Route: 065

REACTIONS (33)
  - Gallbladder rupture [Recovering/Resolving]
  - Multiple sclerosis relapse [Unknown]
  - Pain [Unknown]
  - Appendicitis perforated [Unknown]
  - Internal injury [Unknown]
  - Procedural haemorrhage [Unknown]
  - Leukopenia [Unknown]
  - Intellectual disability [Not Recovered/Not Resolved]
  - Memory impairment [Unknown]
  - Eye disorder [Unknown]
  - Mobility decreased [Recovering/Resolving]
  - Insomnia [Recovering/Resolving]
  - Coordination abnormal [Unknown]
  - Haemoglobin decreased [Not Recovered/Not Resolved]
  - Mood altered [Recovering/Resolving]
  - Fall [Not Recovered/Not Resolved]
  - Disorientation [Not Recovered/Not Resolved]
  - Tremor [Unknown]
  - Incontinence [Not Recovered/Not Resolved]
  - Pyrexia [Unknown]
  - Dyspepsia [Unknown]
  - Dyskinesia [Unknown]
  - Laryngitis [Unknown]
  - Anaemia [Unknown]
  - Hypertension [Recovering/Resolving]
  - Alopecia [Recovering/Resolving]
  - Cough [Recovering/Resolving]
  - Productive cough [Recovering/Resolving]
  - Dizziness [Recovering/Resolving]
  - Weight increased [Recovering/Resolving]
  - Crying [Unknown]
  - Anger [Unknown]
  - Faeces hard [Unknown]

NARRATIVE: CASE EVENT DATE: 20221001
